FAERS Safety Report 6510581-X (Version None)
Quarter: 2009Q4

REPORT INFORMATION
  Report Type: 
  Country: None (occurrence: None)
  Receive Date: 20091222
  Receipt Date: 20091029
  Transmission Date: 20100525
  Serious: No
  Sender: FDA-Public Use
  Company Number: US-ASTRAZENECA-2009SE23827

PATIENT
  Age: 72 Year

DRUGS (1)
  1. CRESTOR [Suspect]
     Route: 048
     Dates: start: 20091008

REACTIONS (1)
  - DYSPHAGIA [None]
